FAERS Safety Report 8784912 (Version 2)
Quarter: 2013Q4

REPORT INFORMATION
  Report Type: Spontaneous
  Country: GB (occurrence: GB)
  Receive Date: 20120914
  Receipt Date: 20131106
  Transmission Date: 20140711
  Serious: Yes (Hospitalization, Disabling)
  Sender: FDA-Public Use
  Company Number: GB-009507513-1209GBR005132

PATIENT
  Age: 67 Year
  Sex: Male
  Weight: 89.9 kg

DRUGS (3)
  1. COZAAR 100MG, COMPRIM? PELLICUL? [Suspect]
     Indication: HYPERTENSION
     Dosage: 100 MG, UNK
     Route: 048
     Dates: start: 20111130, end: 20120207
  2. SIMVASTATIN [Concomitant]
     Dosage: 40 MG, UNK
     Dates: start: 20110927
  3. TAMSULOSIN HYDROCHLORIDE [Concomitant]
     Dosage: 400 MG, UNK
     Dates: start: 20110317

REACTIONS (2)
  - Cerebrovascular accident [Recovering/Resolving]
  - Cerebral infarction [Unknown]
